FAERS Safety Report 18312610 (Version 1)
Quarter: 2020Q3

REPORT INFORMATION
  Report Type: Spontaneous
  Country: US (occurrence: US)
  Receive Date: 20200925
  Receipt Date: 20200925
  Transmission Date: 20201103
  Serious: No
  Sender: FDA-Public Use
  Company Number: US-BAYER-2020-206007

PATIENT
  Age: 44 Year
  Sex: Female

DRUGS (2)
  1. MIRENA [Suspect]
     Active Substance: LEVONORGESTREL
     Indication: CERVIX CARCINOMA STAGE 0
  2. MIRENA [Suspect]
     Active Substance: LEVONORGESTREL
     Indication: INTRA-UTERINE CONTRACEPTIVE DEVICE INSERTION
     Dosage: 20?G PER DAY, CONTINUOUSLY
     Route: 015
     Dates: end: 20200824

REACTIONS (2)
  - Device defective [None]
  - Device issue [None]

NARRATIVE: CASE EVENT DATE: 20200824
